APPROVED DRUG PRODUCT: CLINDAMYCIN PHOSPHATE
Active Ingredient: CLINDAMYCIN PHOSPHATE
Strength: EQ 1% BASE
Dosage Form/Route: GEL;TOPICAL
Application: A212466 | Product #001 | TE Code: AB1
Applicant: ALEMBIC PHARMACEUTICALS LTD
Approved: Apr 2, 2024 | RLD: No | RS: No | Type: RX